FAERS Safety Report 21400325 (Version 1)
Quarter: 2022Q4

REPORT INFORMATION
  Report Type: Spontaneous
  Country: CA (occurrence: CA)
  Receive Date: 20221002
  Receipt Date: 20221002
  Transmission Date: 20230112
  Serious: Yes (Life-Threatening, Hospitalization, Disabling, Other)
  Sender: FDA-Public Use
  Company Number: CA-BRISTOL-MYERS SQUIBB COMPANY-2022-110403

PATIENT
  Age: 43 Year
  Sex: Female
  Weight: 68 kg

DRUGS (173)
  1. ORENCIA [Suspect]
     Active Substance: ABATACEPT
     Indication: Rheumatoid arthritis
     Route: 058
  2. ORENCIA [Suspect]
     Active Substance: ABATACEPT
     Indication: Rheumatoid arthritis
     Route: 042
  3. ORENCIA [Suspect]
     Active Substance: ABATACEPT
     Route: 041
  4. ORENCIA [Suspect]
     Active Substance: ABATACEPT
     Indication: Rheumatoid arthritis
     Route: 065
  5. ACETAMINOPHEN [Concomitant]
     Active Substance: ACETAMINOPHEN
     Indication: Product used for unknown indication
     Route: 065
  6. ACETAMINOPHEN/WDEXTROPROPOXYPHENE [Concomitant]
     Indication: Product used for unknown indication
     Route: 065
  7. ACETAMINOPHEN\CAFFEINE\DIHYDROCODEINE BITARTRATE [Concomitant]
     Active Substance: ACETAMINOPHEN\CAFFEINE\DIHYDROCODEINE BITARTRATE
     Indication: Product used for unknown indication
     Route: 065
  8. ACETAMINOPHEN\OXYCODONE HYDROCHLORIDE [Concomitant]
     Active Substance: ACETAMINOPHEN\OXYCODONE HYDROCHLORIDE
     Indication: Product used for unknown indication
     Route: 065
  9. ACTEMRA [Concomitant]
     Active Substance: TOCILIZUMAB
     Indication: Rheumatoid arthritis
     Route: 042
  10. ACTEMRA [Concomitant]
     Active Substance: TOCILIZUMAB
     Route: 048
  11. ACTEMRA [Concomitant]
     Active Substance: TOCILIZUMAB
     Route: 058
  12. ACTEMRA [Concomitant]
     Active Substance: TOCILIZUMAB
     Route: 042
  13. ACTEMRA [Concomitant]
     Active Substance: TOCILIZUMAB
     Route: 042
  14. ACTEMRA [Concomitant]
     Active Substance: TOCILIZUMAB
     Route: 042
  15. ADALIMUMAB [Concomitant]
     Active Substance: ADALIMUMAB
     Indication: Psoriatic arthropathy
     Route: 058
  16. ADALIMUMAB [Concomitant]
     Active Substance: ADALIMUMAB
     Dosage: SOLUTION SUBCUTANEOUS
     Route: 048
  17. ADALIMUMAB [Concomitant]
     Active Substance: ADALIMUMAB
     Route: 058
  18. ALENDRONATE SODIUM [Concomitant]
     Active Substance: ALENDRONATE SODIUM
     Indication: Rheumatoid arthritis
     Route: 048
  19. ALENDRONATE SODIUM [Concomitant]
     Active Substance: ALENDRONATE SODIUM
     Route: 065
  20. LEFLUNOMIDE [Concomitant]
     Active Substance: LEFLUNOMIDE
     Indication: Rheumatoid arthritis
     Route: 048
  21. PREDNISONE [Concomitant]
     Active Substance: PREDNISONE
     Indication: Rheumatoid arthritis
     Route: 048
  22. PREDNISONE [Concomitant]
     Active Substance: PREDNISONE
     Route: 065
  23. PREDNISONE [Concomitant]
     Active Substance: PREDNISONE
     Route: 065
  24. ARAVA [Concomitant]
     Active Substance: LEFLUNOMIDE
     Indication: Rheumatoid arthritis
     Route: 048
  25. ARAVA [Concomitant]
     Active Substance: LEFLUNOMIDE
     Route: 048
  26. ARAVA [Concomitant]
     Active Substance: LEFLUNOMIDE
     Route: 065
  27. ACETAMINOPHEN\CAFFEINE\CODEINE PHOSPHATE [Concomitant]
     Active Substance: ACETAMINOPHEN\CAFFEINE\CODEINE PHOSPHATE
     Indication: Product used for unknown indication
     Route: 065
  28. ATIVAN [Concomitant]
     Active Substance: LORAZEPAM
     Indication: Product used for unknown indication
     Route: 065
  29. CAFFEINE [Concomitant]
     Active Substance: CAFFEINE
     Indication: Product used for unknown indication
     Route: 065
  30. CALCIUM [Concomitant]
     Active Substance: CALCIUM
     Indication: Product used for unknown indication
     Route: 065
  31. CELEBREX [Concomitant]
     Active Substance: CELECOXIB
     Indication: Product used for unknown indication
     Route: 048
  32. CETIRIZINE [Concomitant]
     Active Substance: CETIRIZINE HYDROCHLORIDE
     Indication: Rheumatoid arthritis
     Route: 048
  33. CETIRIZINE [Concomitant]
     Active Substance: CETIRIZINE HYDROCHLORIDE
     Route: 065
  34. CETIRIZINE HYDROCHLORIDE [Concomitant]
     Active Substance: CETIRIZINE HYDROCHLORIDE
     Indication: Rheumatoid arthritis
     Route: 048
  35. CHLORAPREP [Concomitant]
     Active Substance: CHLORHEXIDINE GLUCONATE\ISOPROPYL ALCOHOL
     Indication: Product used for unknown indication
     Route: 061
  36. CHLORAPREP [Concomitant]
     Active Substance: CHLORHEXIDINE GLUCONATE\ISOPROPYL ALCOHOL
     Route: 048
  37. CHLORAPREP [Concomitant]
     Active Substance: CHLORHEXIDINE GLUCONATE\ISOPROPYL ALCOHOL
     Route: 065
  38. CIMZIA [Concomitant]
     Active Substance: CERTOLIZUMAB PEGOL
     Indication: Rheumatoid arthritis
     Route: 058
  39. CIMZIA [Concomitant]
     Active Substance: CERTOLIZUMAB PEGOL
     Route: 058
  40. CIMZIA [Concomitant]
     Active Substance: CERTOLIZUMAB PEGOL
     Route: 065
  41. CODEINE [Concomitant]
     Active Substance: CODEINE
     Indication: Product used for unknown indication
     Route: 065
  42. CORTISONE [Concomitant]
     Active Substance: CORTISONE
     Indication: Rheumatoid arthritis
     Route: 058
  43. CORTISONE [Concomitant]
     Active Substance: CORTISONE
     Route: 003
  44. CORTISONE [Concomitant]
     Active Substance: CORTISONE
     Route: 048
  45. CORTISONE [Concomitant]
     Active Substance: CORTISONE
     Route: 061
  46. CORTISONE [Concomitant]
     Active Substance: CORTISONE
     Route: 065
  47. CORTISONE ACETATE [Concomitant]
     Active Substance: CORTISONE ACETATE
     Indication: Rheumatoid arthritis
     Route: 061
  48. CORTISONE ACETATE [Concomitant]
     Active Substance: CORTISONE ACETATE
     Route: 048
  49. COSENTYX [Concomitant]
     Active Substance: SECUKINUMAB
     Indication: Psoriatic arthropathy
     Route: 065
  50. DESOGESTREL AND ETHINYL ESTRADIOL [Concomitant]
     Active Substance: DESOGESTREL\ETHINYL ESTRADIOL
     Indication: Product used for unknown indication
     Route: 065
  51. DESOXIMETASONE [Concomitant]
     Active Substance: DESOXIMETASONE
     Indication: Rheumatoid arthritis
     Route: 048
  52. DICLOFENAC [Concomitant]
     Active Substance: DICLOFENAC
     Indication: Product used for unknown indication
     Route: 047
  53. DICLOFENAC POTASSIUM [Concomitant]
     Active Substance: DICLOFENAC POTASSIUM
     Indication: Product used for unknown indication
     Route: 065
  54. DICLOFENAC SODIUM [Concomitant]
     Active Substance: DICLOFENAC SODIUM
     Indication: Product used for unknown indication
     Route: 065
  55. DICLOFENAC SODIUM [Concomitant]
     Active Substance: DICLOFENAC SODIUM
     Route: 065
  56. DOXYCYCLINE [Concomitant]
     Active Substance: DOXYCYCLINE
     Indication: Product used for unknown indication
     Route: 065
  57. ENBREL [Concomitant]
     Active Substance: ETANERCEPT
     Indication: Rheumatoid arthritis
     Route: 058
  58. ENBREL [Concomitant]
     Active Substance: ETANERCEPT
     Indication: Psoriatic arthropathy
     Route: 058
  59. ENBREL [Concomitant]
     Active Substance: ETANERCEPT
     Route: 058
  60. ERELZI [Concomitant]
     Active Substance: ETANERCEPT-SZZS
     Indication: Rheumatoid arthritis
     Route: 058
  61. ERGOCALCIFEROL [Concomitant]
     Active Substance: ERGOCALCIFEROL
     Indication: Product used for unknown indication
     Route: 065
  62. FOLIC ACID [Concomitant]
     Active Substance: FOLIC ACID
     Indication: Rheumatoid arthritis
     Route: 065
  63. FOLIC ACID [Concomitant]
     Active Substance: FOLIC ACID
     Route: 065
  64. FOLIC ACID [Concomitant]
     Active Substance: FOLIC ACID
     Route: 065
  65. FOLIC ACID [Concomitant]
     Active Substance: FOLIC ACID
     Dosage: 25
     Route: 065
  66. FOLIC ACID [Concomitant]
     Active Substance: FOLIC ACID
     Dosage: 1
     Route: 058
  67. FOLIC ACID [Concomitant]
     Active Substance: FOLIC ACID
     Route: 065
  68. FOLIC ACID [Concomitant]
     Active Substance: FOLIC ACID
     Route: 065
  69. FOSAMAX [Concomitant]
     Active Substance: ALENDRONATE SODIUM
     Indication: Product used for unknown indication
     Route: 048
  70. GLUCOSAMINE [Concomitant]
     Active Substance: GLUCOSAMINE
     Indication: Product used for unknown indication
     Route: 065
  71. HUMIRA [Concomitant]
     Active Substance: ADALIMUMAB
     Indication: Rheumatoid arthritis
     Route: 058
  72. HUMIRA [Concomitant]
     Active Substance: ADALIMUMAB
     Indication: Psoriatic arthropathy
     Route: 065
  73. HYDROCORTISONE PROBUTATE [Concomitant]
     Active Substance: HYDROCORTISONE PROBUTATE
     Indication: Product used for unknown indication
     Route: 065
  74. HYDROXYCHLOROQUINE [Concomitant]
     Active Substance: HYDROXYCHLOROQUINE
     Indication: Rheumatoid arthritis
     Route: 048
  75. HYDROXYCHLOROQUINE [Concomitant]
     Active Substance: HYDROXYCHLOROQUINE
     Route: 065
  76. HYDROXYCHLOROQUINE [Concomitant]
     Active Substance: HYDROXYCHLOROQUINE
     Dosage: 40
     Route: 066
  77. HYDROXYCHLOROQUINE [Concomitant]
     Active Substance: HYDROXYCHLOROQUINE
     Route: 065
  78. HYDROXYCHLOROQUINE SULFATE [Concomitant]
     Active Substance: HYDROXYCHLOROQUINE SULFATE
     Indication: Rheumatoid arthritis
     Route: 065
  79. IBUPROFEN [Concomitant]
     Active Substance: IBUPROFEN
     Indication: Product used for unknown indication
     Route: 065
  80. INFLIXIMAB [Concomitant]
     Active Substance: INFLIXIMAB
     Indication: Rheumatoid arthritis
     Route: 042
  81. INFLIXIMAB [Concomitant]
     Active Substance: INFLIXIMAB
     Route: 065
  82. KEVZARA [Concomitant]
     Active Substance: SARILUMAB
     Indication: Rheumatoid arthritis
     Route: 065
  83. LEFLUNOMIDE [Concomitant]
     Active Substance: LEFLUNOMIDE
     Indication: Product used for unknown indication
     Route: 048
  84. LEFLUNOMIDE [Concomitant]
     Active Substance: LEFLUNOMIDE
     Route: 065
  85. LANSOPRAZOLE [Concomitant]
     Active Substance: LANSOPRAZOLE
     Indication: Product used for unknown indication
     Dosage: CAPSULE, DELAYED RELEASE
     Route: 065
  86. LEVOTHYROXINE SODIUM [Concomitant]
     Active Substance: LEVOTHYROXINE SODIUM
     Indication: Product used for unknown indication
     Route: 065
  87. LISINOPRIL [Concomitant]
     Active Substance: LISINOPRIL
     Indication: Product used for unknown indication
     Route: 065
  88. FLUMETHASONE PIVALATE [Concomitant]
     Active Substance: FLUMETHASONE PIVALATE
     Indication: Rheumatoid arthritis
     Route: 065
  89. LYRICA [Concomitant]
     Active Substance: PREGABALIN
     Indication: Product used for unknown indication
     Route: 065
  90. MAGNESIUM CARBONATE [Concomitant]
     Active Substance: MAGNESIUM CARBONATE
     Indication: Product used for unknown indication
     Route: 065
  91. MELOXICAM [Concomitant]
     Active Substance: MELOXICAM
     Indication: Product used for unknown indication
     Route: 065
  92. METHOTREXATE [Concomitant]
     Active Substance: METHOTREXATE
     Indication: Rheumatoid arthritis
     Route: 048
  93. METHOTREXATE [Concomitant]
     Active Substance: METHOTREXATE
     Route: 065
  94. METHOTREXATE [Concomitant]
     Active Substance: METHOTREXATE
     Route: 058
  95. METHOTREXATE [Concomitant]
     Active Substance: METHOTREXATE
     Route: 013
  96. METHOTREXATE [Concomitant]
     Active Substance: METHOTREXATE
     Dosage: 20
     Route: 048
  97. METHOTREXATE [Concomitant]
     Active Substance: METHOTREXATE
     Route: 048
  98. METHOTREXATE [Concomitant]
     Active Substance: METHOTREXATE
     Route: 065
  99. METHOTREXATE SODIUM [Concomitant]
     Active Substance: METHOTREXATE SODIUM
     Indication: Rheumatoid arthritis
     Route: 048
  100. METHOTREXATE SODIUM [Concomitant]
     Active Substance: METHOTREXATE SODIUM
     Route: 048
  101. METHOTREXATE SODIUM [Concomitant]
     Active Substance: METHOTREXATE SODIUM
     Route: 058
  102. MYCOPHENOLATE MOFETIL [Concomitant]
     Active Substance: MYCOPHENOLATE MOFETIL
     Indication: Product used for unknown indication
     Route: 065
  103. NAPROXEN SODIUM [Concomitant]
     Active Substance: NAPROXEN SODIUM
     Indication: Rheumatoid arthritis
     Route: 065
  104. NEOMYCIN [Concomitant]
     Active Substance: NEOMYCIN
     Indication: Product used for unknown indication
     Route: 065
  105. OTEZLA [Concomitant]
     Active Substance: APREMILAST
     Indication: Product used for unknown indication
     Route: 065
  106. OXYCODONE [Concomitant]
     Active Substance: OXYCODONE
     Indication: Product used for unknown indication
     Route: 065
  107. OXYCODONE TEREPHTHALATE [Concomitant]
     Active Substance: OXYCODONE TEREPHTHALATE
     Indication: Product used for unknown indication
     Route: 065
  108. PANTOPRAZOLE SODIUM [Concomitant]
     Active Substance: PANTOPRAZOLE SODIUM
     Indication: Product used for unknown indication
     Route: 065
  109. PERIOGARD ALCOHOL FREE [Concomitant]
     Active Substance: CHLORHEXIDINE GLUCONATE
     Indication: Product used for unknown indication
     Route: 002
  110. PHTHALYLSULFATHIAZOLE [Concomitant]
     Active Substance: PHTHALYLSULFATHIAZOLE
     Indication: Rheumatoid arthritis
     Route: 016
  111. PHTHALYLSULFATHIAZOLE [Concomitant]
     Active Substance: PHTHALYLSULFATHIAZOLE
     Route: 048
  112. PHTHALYLSULFATHIAZOLE [Concomitant]
     Active Substance: PHTHALYLSULFATHIAZOLE
     Route: 065
  113. PHTHALYLSULFATHIAZOLE [Concomitant]
     Active Substance: PHTHALYLSULFATHIAZOLE
     Route: 042
  114. PHTHALYLSULFATHIAZOLE [Concomitant]
     Active Substance: PHTHALYLSULFATHIAZOLE
     Route: 065
  115. PHTHALYLSULFATHIAZOLE [Concomitant]
     Active Substance: PHTHALYLSULFATHIAZOLE
     Route: 065
  116. PIROXICAM [Concomitant]
     Active Substance: PIROXICAM
     Indication: Product used for unknown indication
     Route: 065
  117. PLAQUENIL [Concomitant]
     Active Substance: HYDROXYCHLOROQUINE SULFATE
     Indication: Rheumatoid arthritis
     Route: 048
  118. PLAQUENIL [Concomitant]
     Active Substance: HYDROXYCHLOROQUINE SULFATE
     Route: 065
  119. PREDNISOLONE [Concomitant]
     Active Substance: PREDNISOLONE
     Indication: Product used for unknown indication
  120. PSEUDOEPHEDRINE HYDROCHLORIDE [Concomitant]
     Active Substance: PSEUDOEPHEDRINE HYDROCHLORIDE
     Indication: Rheumatoid arthritis
     Route: 065
  121. PSEUDOEPHEDRINE HYDROCHLORIDE [Concomitant]
     Active Substance: PSEUDOEPHEDRINE HYDROCHLORIDE
     Route: 065
  122. QUETIAPINE [Concomitant]
     Active Substance: QUETIAPINE
     Indication: Product used for unknown indication
     Route: 065
  123. RAMIPRIL [Concomitant]
     Active Substance: RAMIPRIL
     Indication: Product used for unknown indication
     Route: 065
  124. CETIRIZINE HYDROCHLORIDE [Concomitant]
     Active Substance: CETIRIZINE HYDROCHLORIDE
     Indication: Product used for unknown indication
     Route: 048
  125. CETIRIZINE HYDROCHLORIDE [Concomitant]
     Active Substance: CETIRIZINE HYDROCHLORIDE
     Route: 065
  126. CETIRIZINE HYDROCHLORIDE [Concomitant]
     Active Substance: CETIRIZINE HYDROCHLORIDE
     Route: 065
  127. CETIRIZINE HYDROCHLORIDE\PSEUDOEPHEDRINE HYDROCHLORIDE [Concomitant]
     Active Substance: CETIRIZINE HYDROCHLORIDE\PSEUDOEPHEDRINE HYDROCHLORIDE
     Indication: Rheumatoid arthritis
     Dosage: TABLET (EXTENDED-RELEASE)
     Route: 065
  128. CETIRIZINE HYDROCHLORIDE\PSEUDOEPHEDRINE HYDROCHLORIDE [Concomitant]
     Active Substance: CETIRIZINE HYDROCHLORIDE\PSEUDOEPHEDRINE HYDROCHLORIDE
     Indication: Rheumatoid arthritis
     Dosage: TABLET (EXTENDED-RELEASE)
     Route: 048
  129. CETIRIZINE HYDROCHLORIDE\PSEUDOEPHEDRINE HYDROCHLORIDE [Concomitant]
     Active Substance: CETIRIZINE HYDROCHLORIDE\PSEUDOEPHEDRINE HYDROCHLORIDE
     Dosage: TABLET (EXTENDED-RELEASE)
     Route: 065
  130. CETIRIZINE HYDROCHLORIDE\PSEUDOEPHEDRINE HYDROCHLORIDE [Concomitant]
     Active Substance: CETIRIZINE HYDROCHLORIDE\PSEUDOEPHEDRINE HYDROCHLORIDE
     Route: 065
  131. REMICADE [Concomitant]
     Active Substance: INFLIXIMAB
     Indication: Rheumatoid arthritis
     Dosage: POWDER FOR SOLUTION INTRAVENOUS
     Route: 058
  132. REMICADE [Concomitant]
     Active Substance: INFLIXIMAB
     Dosage: POWDER FORSOLUTION INTRAVENOUS
     Route: 042
  133. RISEDRONATE SODIUM [Concomitant]
     Active Substance: RISEDRONATE SODIUM
     Indication: Product used for unknown indication
     Route: 065
  134. RITUXIMAB [Concomitant]
     Active Substance: RITUXIMAB
     Indication: Rheumatoid arthritis
     Route: 042
  135. RITUXIMAB [Concomitant]
     Active Substance: RITUXIMAB
     Route: 058
  136. SULFASALAZINE [Concomitant]
     Active Substance: SULFASALAZINE
     Indication: Product used for unknown indication
     Route: 065
  137. FISH OIL [Concomitant]
     Active Substance: FISH OIL
     Indication: Product used for unknown indication
     Route: 065
  138. SIMPONI [Concomitant]
     Active Substance: GOLIMUMAB
     Indication: Rheumatoid arthritis
     Dosage: SOLUTION SUBCUTANEOUS
     Route: 042
  139. SIMPONI [Concomitant]
     Active Substance: GOLIMUMAB
     Dosage: SOLUTION SUBCUTANEOUS
     Route: 065
  140. SIMPONI [Concomitant]
     Active Substance: GOLIMUMAB
     Dosage: SOLUTION SUBCUTANEOUS
     Route: 058
  141. SIMPONI [Concomitant]
     Active Substance: GOLIMUMAB
     Route: 065
  142. STELARA [Concomitant]
     Active Substance: USTEKINUMAB
     Indication: Psoriatic arthropathy
     Dosage: SOLUTION SUBCUTANEOUS
     Route: 058
  143. STELARA [Concomitant]
     Active Substance: USTEKINUMAB
     Dosage: SOLUTION SUBCUTANEOUS
     Route: 042
  144. STELARA [Concomitant]
     Active Substance: USTEKINUMAB
     Dosage: SOLUTION SUBCUTANEOUS
     Route: 058
  145. SULFAMETHOXAZOLE [Concomitant]
     Active Substance: SULFAMETHOXAZOLE
     Indication: Product used for unknown indication
     Route: 065
  146. SULFAMETHOXAZOLE AND TRIMETHOPRIM [Concomitant]
     Active Substance: SULFAMETHOXAZOLE\TRIMETHOPRIM
     Indication: Product used for unknown indication
     Route: 065
  147. SULFASALAZINE [Concomitant]
     Active Substance: SULFASALAZINE
     Indication: Rheumatoid arthritis
     Route: 048
  148. SULFASALAZINE [Concomitant]
     Active Substance: SULFASALAZINE
     Route: 065
  149. SULFASALAZINE [Concomitant]
     Active Substance: SULFASALAZINE
     Dosage: DOSE: 2000 UNITS NOT SPECIFIED
     Route: 048
  150. SULFASALAZINE [Concomitant]
     Active Substance: SULFASALAZINE
     Dosage: DOSE: 500 UNITS NOT SPECIFIED
     Route: 048
  151. SULFASALAZINE [Concomitant]
     Active Substance: SULFASALAZINE
     Dosage: DOSE: 500 UNITS NOTS SPECIFIED
     Route: 065
  152. SULFASALAZINE [Concomitant]
     Active Substance: SULFASALAZINE
     Route: 065
  153. TOPICORT [Concomitant]
     Active Substance: DESOXIMETASONE
     Indication: Rheumatoid arthritis
     Route: 058
  154. TOPICORT [Concomitant]
     Active Substance: DESOXIMETASONE
     Route: 065
  155. TRAMADOL HYDROCHLORIDE [Concomitant]
     Active Substance: TRAMADOL HYDROCHLORIDE
     Indication: Product used for unknown indication
     Route: 065
  156. TYLENOL [Concomitant]
     Active Substance: ACETAMINOPHEN
     Indication: Product used for unknown indication
     Route: 065
  157. TYLENOL WITH CODEINE [Concomitant]
     Active Substance: ACETAMINOPHEN\CODEINE PHOSPHATE
     Indication: Product used for unknown indication
     Route: 065
  158. VITAMIN C [Concomitant]
     Active Substance: ASCORBIC ACID
     Indication: Product used for unknown indication
     Route: 065
  159. VITAMIN D [Concomitant]
     Active Substance: VITAMIN D NOS
     Indication: Product used for unknown indication
     Route: 065
  160. PREDNISONE [Concomitant]
     Active Substance: PREDNISONE
     Indication: Rheumatoid arthritis
     Route: 048
  161. XELJANZ [Concomitant]
     Active Substance: TOFACITINIB CITRATE
     Indication: Rheumatoid arthritis
     Route: 048
  162. XELJANZ [Concomitant]
     Active Substance: TOFACITINIB CITRATE
     Indication: Psoriatic arthropathy
     Dosage: DOSE: 5 UNITS NOT SPECIFIED
     Route: 065
  163. XELJANZ [Concomitant]
     Active Substance: TOFACITINIB CITRATE
     Route: 065
  164. XELJANZ [Concomitant]
     Active Substance: TOFACITINIB CITRATE
     Route: 065
  165. XELJANZ [Concomitant]
     Active Substance: TOFACITINIB CITRATE
     Route: 065
  166. XELJANZ [Concomitant]
     Active Substance: TOFACITINIB CITRATE
     Route: 065
  167. XELJANZ [Concomitant]
     Active Substance: TOFACITINIB CITRATE
     Dosage: DOSE: 5 UNITS NOT SPECIFIED
     Route: 048
  168. XELJANZ [Concomitant]
     Active Substance: TOFACITINIB CITRATE
     Route: 065
  169. DEXAMETHASONE [Concomitant]
     Active Substance: DEXAMETHASONE
     Indication: Product used for unknown indication
     Route: 065
  170. PREDNISONE [Concomitant]
     Active Substance: PREDNISONE
     Indication: Rheumatoid arthritis
     Route: 065
  171. PREDNISONE [Concomitant]
     Active Substance: PREDNISONE
     Indication: Psoriatic arthropathy
     Route: 042
  172. PREDNISONE [Concomitant]
     Active Substance: PREDNISONE
     Indication: Condition aggravated
     Route: 048
  173. PREDNISONE [Concomitant]
     Active Substance: PREDNISONE
     Route: 048

REACTIONS (96)
  - Abdominal discomfort [Unknown]
  - Abdominal pain upper [Unknown]
  - Alopecia [Unknown]
  - Anti-cyclic citrullinated peptide antibody positive [Unknown]
  - Anxiety [Unknown]
  - Arthralgia [Unknown]
  - Asthenia [Unknown]
  - Asthma [Unknown]
  - Autoimmune disorder [Unknown]
  - Blister [Unknown]
  - Blood cholesterol increased [Unknown]
  - C-reactive protein [Unknown]
  - C-reactive protein abnormal [Unknown]
  - Chest pain [Unknown]
  - Condition aggravated [Unknown]
  - Confusional state [Unknown]
  - Contusion [Unknown]
  - Decreased appetite [Unknown]
  - Deep vein thrombosis postoperative [Unknown]
  - Diarrhoea [Unknown]
  - Discomfort [Unknown]
  - Drug hypersensitivity [Unknown]
  - Drug ineffective [Unknown]
  - Drug intolerance [Unknown]
  - Dry mouth [Unknown]
  - Duodenal ulcer perforation [Unknown]
  - Dyspnoea [Unknown]
  - Fatigue [Unknown]
  - Fibromyalgia [Unknown]
  - Folliculitis [Unknown]
  - Gait inability [Unknown]
  - Gastrointestinal disorder [Unknown]
  - General physical health deterioration [Unknown]
  - Glossodynia [Unknown]
  - Hand deformity [Unknown]
  - Headache [Unknown]
  - Helicobacter infection [Unknown]
  - Hepatic enzyme increased [Unknown]
  - Hypersensitivity [Unknown]
  - Hypertension [Unknown]
  - Hypoaesthesia [Unknown]
  - Ill-defined disorder [Unknown]
  - Impaired healing [Unknown]
  - Infection [Unknown]
  - Infusion related reaction [Unknown]
  - Injury [Unknown]
  - Irritable bowel syndrome [Unknown]
  - Joint swelling [Unknown]
  - Arthropathy [Unknown]
  - Lip dry [Unknown]
  - Liver disorder [Unknown]
  - Liver injury [Unknown]
  - Lower limb fracture [Unknown]
  - Lower respiratory tract infection [Unknown]
  - Lung disorder [Unknown]
  - Malaise [Unknown]
  - Mobility decreased [Unknown]
  - Muscle injury [Unknown]
  - Musculoskeletal stiffness [Unknown]
  - Nasopharyngitis [Unknown]
  - Nausea [Unknown]
  - Night sweats [Unknown]
  - Oedema [Unknown]
  - Osteoarthritis [Unknown]
  - Pain [Unknown]
  - Pemphigus [Unknown]
  - Pericarditis [Unknown]
  - Peripheral swelling [Unknown]
  - Pruritus [Unknown]
  - Psoriatic arthropathy [Unknown]
  - Pyrexia [Unknown]
  - Rash [Unknown]
  - Rheumatic fever [Unknown]
  - Rheumatoid arthritis [Unknown]
  - Rheumatoid factor positive [Unknown]
  - Road traffic accident [Unknown]
  - Sciatica [Unknown]
  - Sinusitis [Unknown]
  - Sleep disorder due to general medical condition, insomnia type [Unknown]
  - Stomatitis [Unknown]
  - Swelling [Unknown]
  - Swollen joint count increased [Unknown]
  - Synovitis [Unknown]
  - Systemic lupus erythematosus [Unknown]
  - Therapeutic product effect decreased [Unknown]
  - Therapy non-responder [Unknown]
  - Treatment failure [Unknown]
  - Type 2 diabetes mellitus [Unknown]
  - Urticaria [Unknown]
  - Vomiting [Unknown]
  - Weight increased [Unknown]
  - Wheezing [Unknown]
  - Wound [Unknown]
  - Adverse event [Unknown]
  - Hospitalisation [Unknown]
  - Prescribed underdose [Unknown]
